FAERS Safety Report 19067529 (Version 1)
Quarter: 2021Q1

REPORT INFORMATION
  Report Type: Spontaneous
  Country: US (occurrence: US)
  Receive Date: 20210329
  Receipt Date: 20210329
  Transmission Date: 20210420
  Serious: Yes (Hospitalization, Other)
  Sender: FDA-Public Use
  Company Number: US-NOVOPROD-797284

PATIENT
  Sex: Female

DRUGS (2)
  1. LEVEMIR [Suspect]
     Active Substance: INSULIN DETEMIR
     Indication: PRODUCT USED FOR UNKNOWN INDICATION
     Dosage: 15 IU, BID
     Route: 058
     Dates: start: 20150101
  2. LEVEMIR [Suspect]
     Active Substance: INSULIN DETEMIR
     Dosage: 15 IU, QD
     Route: 058

REACTIONS (6)
  - Blood glucose decreased [Recovered/Resolved]
  - Blood pressure increased [Not Recovered/Not Resolved]
  - Product colour issue [Not Recovered/Not Resolved]
  - Road traffic accident [Not Recovered/Not Resolved]
  - Chronic kidney disease [Not Recovered/Not Resolved]
  - Liquid product physical issue [Not Recovered/Not Resolved]

NARRATIVE: CASE EVENT DATE: 202011
